FAERS Safety Report 7420662-4 (Version None)
Quarter: 2011Q2

REPORT INFORMATION
  Report Type: 
  Country: None (occurrence: None)
  Receive Date: 20110418
  Receipt Date: 20110407
  Transmission Date: 20111010
  Serious: Yes (Hospitalization, Other)
  Sender: FDA-Public Use
  Company Number: US-ROCHE-727313

PATIENT
  Sex: Male
  Weight: 70.3 kg

DRUGS (1)
  1. ACCUTANE [Suspect]
     Indication: ACNE
     Route: 065
     Dates: start: 19830901, end: 19840901

REACTIONS (36)
  - DYSPNOEA [None]
  - OESOPHAGEAL DISORDER [None]
  - VERTIGO [None]
  - DEVICE RELATED INFECTION [None]
  - PAIN [None]
  - BACTERAEMIA [None]
  - OESOPHAGEAL POLYP [None]
  - HYPOGLYCAEMIA [None]
  - SOMNOLENCE [None]
  - ABSCESS [None]
  - BARRETT'S OESOPHAGUS [None]
  - PARAESTHESIA [None]
  - INFLAMMATORY BOWEL DISEASE [None]
  - DEPRESSION [None]
  - ANAEMIA [None]
  - CYST [None]
  - HIATUS HERNIA [None]
  - LARGE INTESTINE PERFORATION [None]
  - CROHN'S DISEASE [None]
  - GASTROINTESTINAL INJURY [None]
  - PANCREATITIS [None]
  - FALL [None]
  - OESOPHAGEAL STENOSIS [None]
  - DEHYDRATION [None]
  - SUICIDAL IDEATION [None]
  - CHEST PAIN [None]
  - INCISION SITE COMPLICATION [None]
  - PEPTIC ULCER [None]
  - DRUG HYPERSENSITIVITY [None]
  - DIZZINESS [None]
  - WEIGHT DECREASED [None]
  - POST PROCEDURAL INFECTION [None]
  - WOUND DEHISCENCE [None]
  - FUNGAL TEST POSITIVE [None]
  - INTESTINAL OBSTRUCTION [None]
  - GASTROOESOPHAGEAL REFLUX DISEASE [None]
